FAERS Safety Report 8809159 (Version 2)
Quarter: 2012Q4

REPORT INFORMATION
  Report Type: Spontaneous
  Country: US (occurrence: None)
  Receive Date: 20120918
  Receipt Date: 20120918
  Transmission Date: 20130627
  Serious: Yes (Other)
  Sender: FDA-Public Use
  Company Number: JPI-P-025114

PATIENT
  Age: 42 Year
  Sex: Female
  Weight: 76.2 kg

DRUGS (8)
  1. XYREM [Suspect]
     Indication: CATAPLEXY
     Route: 048
     Dates: start: 20110715
  2. XYREM [Suspect]
     Indication: CATAPLEXY
     Dosage: 6 gm (3 gm,2 in 1 D),Oral
     Route: 048
  3. XYREM [Suspect]
     Indication: CATAPLEXY
  4. PROPRANOLOL HYDROCHLORIDE [Concomitant]
  5. METFORMIN [Concomitant]
  6. SIMVASTATIN [Concomitant]
  7. AMPHENTAMINE, DEXTROAMPHETAMINE MIXED SALTS [Concomitant]
  8. CALCIFEROL [Concomitant]

REACTIONS (10)
  - Abdominal pain [None]
  - Cholelithiasis [None]
  - Musculoskeletal discomfort [None]
  - Nausea [None]
  - Somnolence [None]
  - Abdominal discomfort [None]
  - Sluggishness [None]
  - Paraesthesia [None]
  - Flushing [None]
  - Feeling abnormal [None]
